FAERS Safety Report 8143609-4 (Version None)
Quarter: 2012Q1

REPORT INFORMATION
  Report Type: 
  Country: None (occurrence: None)
  Receive Date: 20120217
  Receipt Date: 20111222
  Transmission Date: 20120608
  Serious: No
  Sender: FDA-Public Use
  Company Number: US-GLAXOSMITHKLINE-A0959217A

PATIENT
  Age: 72 Year
  Sex: Female

DRUGS (12)
  1. FUROSEMIDE [Concomitant]
  2. VOTRIENT [Suspect]
     Indication: RENAL CELL CARCINOMA
     Dosage: 2TAB PER DAY
     Route: 048
     Dates: start: 20111001
  3. WARFARIN [Concomitant]
  4. SLEEPING PILL [Concomitant]
  5. TRAZODONE HYDROCHLORIDE [Concomitant]
  6. HYDROCODONE [Concomitant]
  7. RANITIDINE [Concomitant]
  8. VENLAFAXINE [Concomitant]
  9. LEVOTHYROXINE SODIUM [Concomitant]
  10. IRON SUPPLEMENT [Concomitant]
  11. ATENOLOL [Concomitant]
  12. LISINOPRIL [Concomitant]

REACTIONS (1)
  - LETHARGY [None]
